FAERS Safety Report 11230202 (Version 1)
Quarter: 2015Q2

REPORT INFORMATION
  Report Type: Spontaneous
  Country: US (occurrence: None)
  Receive Date: 20150630
  Receipt Date: 20150630
  Transmission Date: 20150821
  Serious: Yes (Disabling)
  Sender: FDA-Public Use
  Company Number: None

PATIENT
  Age: 61 Year
  Sex: Female
  Weight: 85.73 kg

DRUGS (12)
  1. FISH OIL [Concomitant]
     Active Substance: FISH OIL
  2. VENLAFAXINE HYDROCHLORIDE 75MG [Suspect]
     Active Substance: VENLAFAXINE HYDROCHLORIDE
     Indication: ANXIETY
     Route: 048
     Dates: start: 20120101, end: 20150430
  3. LOSARTAN [Concomitant]
     Active Substance: LOSARTAN
  4. VENLAFAXINE HYDROCHLORIDE 75MG [Suspect]
     Active Substance: VENLAFAXINE HYDROCHLORIDE
     Indication: DEPRESSION
     Route: 048
     Dates: start: 20120101, end: 20150430
  5. VITAMIN B12 [Concomitant]
     Active Substance: CYANOCOBALAMIN
  6. D3 [Concomitant]
     Active Substance: 25-HYDROXYCHOLECALCIFEROL, 5-TRANS-
  7. FLAXSEED [Concomitant]
     Active Substance: FLAX SEED
  8. NORVASC [Concomitant]
     Active Substance: AMLODIPINE BESYLATE
  9. 81MG ASPIRIN [Concomitant]
  10. SIMVISTATIN [Concomitant]
     Active Substance: SIMVASTATIN
  11. MAGNESIUM [Concomitant]
     Active Substance: MAGNESIUM
  12. JANUVIA [Concomitant]
     Active Substance: SITAGLIPTIN PHOSPHATE

REACTIONS (3)
  - Depression [None]
  - Product substitution issue [None]
  - Economic problem [None]

NARRATIVE: CASE EVENT DATE: 20120601
